FAERS Safety Report 17528218 (Version 3)
Quarter: 2020Q3

REPORT INFORMATION
  Report Type: Spontaneous
  Country: BE (occurrence: BE)
  Receive Date: 20200311
  Receipt Date: 20200727
  Transmission Date: 20201102
  Serious: Yes (Other)
  Sender: FDA-Public Use
  Company Number: BE-BAYER-2020-041587

PATIENT
  Age: 83 Year
  Sex: Male

DRUGS (1)
  1. SORAFENIB (RAF KINASE INHIBITOR) [Suspect]
     Active Substance: SORAFENIB
     Indication: HEPATOCELLULAR CARCINOMA

REACTIONS (5)
  - Decreased appetite [None]
  - Fistula of small intestine [Recovered/Resolved]
  - Diarrhoea [None]
  - Abnormal loss of weight [None]
  - Alpha 1 foetoprotein increased [Recovered/Resolved]
